FAERS Safety Report 17401727 (Version 3)
Quarter: 2020Q4

REPORT INFORMATION
  Report Type: Report from Study
  Country: US (occurrence: US)
  Receive Date: 20200211
  Receipt Date: 20201125
  Transmission Date: 20210113
  Serious: Yes (Hospitalization)
  Sender: FDA-Public Use
  Company Number: US-ASTELLAS-2020US004394

PATIENT
  Sex: Male

DRUGS (1)
  1. ENZALUTAMIDE [Suspect]
     Active Substance: ENZALUTAMIDE
     Indication: PROSTATE CANCER
     Route: 048
     Dates: start: 20200116

REACTIONS (5)
  - Dyspepsia [Unknown]
  - Abdominal pain upper [Unknown]
  - Pain [Unknown]
  - Burning sensation [Unknown]
  - Drug ineffective [Unknown]
